FAERS Safety Report 20903368 (Version 1)
Quarter: 2022Q2

REPORT INFORMATION
  Report Type: Report from Study
  Country: CA (occurrence: CA)
  Receive Date: 20220601
  Receipt Date: 20220601
  Transmission Date: 20220720
  Serious: Yes (Hospitalization, Other)
  Sender: FDA-Public Use
  Company Number: CA-ABBVIE-22K-028-4413768-00

PATIENT
  Age: 67 Year
  Sex: Female

DRUGS (1)
  1. RINVOQ [Suspect]
     Active Substance: UPADACITINIB
     Indication: Rheumatoid arthritis
     Route: 048
     Dates: start: 20210901, end: 20220520

REACTIONS (16)
  - Malaise [Unknown]
  - Hallucination [Unknown]
  - Urinary incontinence [Unknown]
  - Anal incontinence [Unknown]
  - Loss of consciousness [Unknown]
  - Abdominal sepsis [Unknown]
  - Intestinal perforation [Unknown]
  - Pyrexia [Unknown]
  - Speech disorder [Unknown]
  - Diarrhoea [Unknown]
  - Faeces discoloured [Unknown]
  - Confusional state [Unknown]
  - Eye disorder [Unknown]
  - Memory impairment [Unknown]
  - Abdominal pain [Unknown]
  - Unevaluable event [Unknown]

NARRATIVE: CASE EVENT DATE: 20220520
